FAERS Safety Report 24036919 (Version 1)
Quarter: 2024Q3

REPORT INFORMATION
  Report Type: Spontaneous
  Country: IT (occurrence: IT)
  Receive Date: 20240701
  Receipt Date: 20240701
  Transmission Date: 20241016
  Serious: Yes (Hospitalization)
  Sender: ABBVIE
  Company Number: None

PATIENT
  Age: 65 Year
  Sex: Female
  Weight: 89 kg

DRUGS (1)
  1. IMBRUVICA [Suspect]
     Active Substance: IBRUTINIB
     Indication: Chronic lymphocytic leukaemia
     Dosage: IBRUTINIB 420 MG OD
     Route: 048
     Dates: start: 20240408, end: 20240601

REACTIONS (1)
  - Hepatitis [Unknown]

NARRATIVE: CASE EVENT DATE: 20240601
